FAERS Safety Report 17946787 (Version 1)
Quarter: 2020Q2

REPORT INFORMATION
  Report Type: Spontaneous
  Country: DE (occurrence: DE)
  Receive Date: 20200625
  Receipt Date: 20200625
  Transmission Date: 20200714
  Serious: Yes (Hospitalization)
  Sender: FDA-Public Use
  Company Number: DE-ALLERGAN-2015178US

PATIENT
  Sex: Female
  Weight: 52 kg

DRUGS (1)
  1. CITALOPRAM HYDROBROMIDE - BP [Suspect]
     Active Substance: CITALOPRAM HYDROBROMIDE
     Indication: INTENTIONAL PRODUCT MISUSE
     Dosage: 5 SEPARATED DOSES; OVERDOSE: 150MG
     Route: 048
     Dates: start: 20200113, end: 20200113

REACTIONS (4)
  - Product administered to patient of inappropriate age [Unknown]
  - Dizziness [Recovered/Resolved]
  - Intentional overdose [Unknown]
  - Suicide attempt [Recovered/Resolved]

NARRATIVE: CASE EVENT DATE: 20200113
